FAERS Safety Report 19410203 (Version 1)
Quarter: 2021Q2

REPORT INFORMATION
  Report Type: Spontaneous
  Country: US (occurrence: US)
  Receive Date: 20210614
  Receipt Date: 20210614
  Transmission Date: 20210717
  Serious: No
  Sender: FDA-Public Use
  Company Number: US-ASTRAZENECA-2021A466266

PATIENT
  Age: 14 Year
  Sex: Female

DRUGS (1)
  1. FASENRA [Suspect]
     Active Substance: BENRALIZUMAB
     Indication: ASTHMA
     Dosage: 30MG EVERY 4 WEEKS FOR THE FIRST 3 DOSE AND THEN EVERY 8 WEEKS
     Route: 058
     Dates: start: 2021

REACTIONS (3)
  - Muscle spasms [Unknown]
  - Trismus [Unknown]
  - Blepharospasm [Unknown]
